FAERS Safety Report 7771540-2 (Version None)
Quarter: 2011Q3

REPORT INFORMATION
  Report Type: 
  Country: None (occurrence: None)
  Receive Date: 20110922
  Receipt Date: 20100923
  Transmission Date: 20111222
  Serious: No
  Sender: FDA-Public Use
  Company Number: US-ASTRAZENECA-2009UW19095

PATIENT
  Age: 35 Year
  Sex: Female
  Weight: 83.5 kg

DRUGS (16)
  1. SEROQUEL [Suspect]
     Indication: BIPOLAR DISORDER
     Route: 048
     Dates: start: 20080211
  2. PREVACID [Concomitant]
     Dates: start: 20061024
  3. IMITREX [Concomitant]
     Dates: start: 20061024
  4. DARVOCET-N 50 [Concomitant]
     Dates: start: 20061024
  5. NABUMETONE [Concomitant]
     Dates: start: 20061024
  6. DEPAKOTE [Concomitant]
  7. FLEXERIL [Concomitant]
  8. GABAPENTIN [Concomitant]
     Dates: start: 20061024
  9. CLOZAPINE [Concomitant]
  10. XANAX [Concomitant]
  11. VALPROIC ACID [Concomitant]
  12. CLONAZEPAM [Concomitant]
     Dates: start: 20061024
  13. SEROQUEL [Suspect]
     Route: 048
  14. ZOLOFT [Concomitant]
     Dates: start: 20061024
  15. LIBRAX [Concomitant]
     Dosage: 5MG-2.5MG 1 CAPS TID
     Dates: start: 20061024
  16. ULTRACET [Concomitant]
     Dates: start: 20061024

REACTIONS (8)
  - BACK INJURY [None]
  - LUMBAR SPINAL STENOSIS [None]
  - BACK PAIN [None]
  - FIBROMYALGIA [None]
  - TYPE 2 DIABETES MELLITUS [None]
  - INTERVERTEBRAL DISC DISPLACEMENT [None]
  - OEDEMA PERIPHERAL [None]
  - SPINAL OSTEOARTHRITIS [None]
